FAERS Safety Report 7714625-9 (Version None)
Quarter: 2011Q3

REPORT INFORMATION
  Report Type: 
  Country: None (occurrence: None)
  Receive Date: 20110829
  Receipt Date: 20110825
  Transmission Date: 20111222
  Serious: No
  Sender: FDA-Public Use
  Company Number: US-PFIZER INC-2011199351

PATIENT
  Sex: Female
  Weight: 55.33 kg

DRUGS (3)
  1. CHANTIX [Suspect]
     Indication: SMOKING CESSATION THERAPY
     Dosage: 0.5 MG, DAILY
     Route: 048
     Dates: start: 20110816, end: 20110801
  2. CHANTIX [Suspect]
     Dosage: 1 MG, 2X/DAY
     Route: 048
     Dates: start: 20110801
  3. SYEDA [Concomitant]
     Indication: CONTRACEPTION
     Dosage: UNK, DAILY

REACTIONS (1)
  - NAUSEA [None]
